FAERS Safety Report 10173436 (Version 1)
Quarter: 2014Q2

REPORT INFORMATION
  Report Type: Spontaneous
  Country: US (occurrence: US)
  Receive Date: 20140515
  Receipt Date: 20140515
  Transmission Date: 20141212
  Serious: No
  Sender: FDA-Public Use
  Company Number: US-BAUSCH-BL-2013-001275

PATIENT
  Age: 60 Year
  Sex: Male

DRUGS (6)
  1. BROMDAY 0.09% [Suspect]
     Indication: PREOPERATIVE CARE
     Dosage: 1 DROP IN RIGHT EYE; ONCE DAILY; OPHTHALMIC
     Route: 047
     Dates: start: 20130211
  2. BESIFLOXACIN HYDROCHLORIDE [Concomitant]
     Dosage: 1 DROP IN RIGHT EYE; THREE TIMES DAILY; OPTHALMIC
     Route: 047
     Dates: start: 20130211
  3. OMEPRAZOLE [Concomitant]
     Indication: GASTROOESOPHAGEAL REFLUX DISEASE
  4. ATORVASTATIN CALCIUM [Concomitant]
     Indication: BLOOD CHOLESTEROL INCREASED
  5. DUTASTERIDE [Concomitant]
  6. SILODOSIN [Concomitant]

REACTIONS (1)
  - Eye irritation [Recovering/Resolving]
